FAERS Safety Report 24630350 (Version 5)
Quarter: 2025Q2

REPORT INFORMATION
  Report Type: Other
  Country: US (occurrence: US)
  Receive Date: 20241118
  Receipt Date: 20250407
  Transmission Date: 20250717
  Serious: Yes (Hospitalization, Other)
  Sender: TRAVERE THERAPEUTICS
  Company Number: US-TRAVERE-2024TVT01170

PATIENT
  Age: 77 Year
  Sex: Male
  Weight: 85.63 kg

DRUGS (27)
  1. FILSPARI [Suspect]
     Active Substance: SPARSENTAN
     Indication: IgA nephropathy
     Route: 048
     Dates: start: 20241102
  2. FILSPARI [Suspect]
     Active Substance: SPARSENTAN
     Route: 048
     Dates: start: 20241114, end: 20250101
  3. ASPIRIN [Concomitant]
     Active Substance: ASPIRIN
  4. CARVEDILOL [Concomitant]
     Active Substance: CARVEDILOL
  5. DILTIAZEM [Concomitant]
     Active Substance: DILTIAZEM
  6. HYDRALAZINE [Concomitant]
     Active Substance: HYDRALAZINE HYDROCHLORIDE
  7. LANTUS [Concomitant]
     Active Substance: INSULIN GLARGINE
  8. NOVOLOG [Concomitant]
     Active Substance: INSULIN ASPART
  9. ROSUVASTATIN [Concomitant]
     Active Substance: ROSUVASTATIN
  10. TARPEYO [Concomitant]
     Active Substance: BUDESONIDE
  11. CETIRIZINE [Concomitant]
     Active Substance: CETIRIZINE HYDROCHLORIDE
  12. NITROGLYCERIN [Concomitant]
     Active Substance: NITROGLYCERIN
  13. VITAMIN B12 [Concomitant]
     Active Substance: CYANOCOBALAMIN
  14. VITAMIN D3 [Concomitant]
     Active Substance: CHOLECALCIFEROL
  15. LASIX [Concomitant]
     Active Substance: FUROSEMIDE
  16. CHOLECALCIFEROL [Concomitant]
     Active Substance: CHOLECALCIFEROL
  17. CYANOCOBALAMIN [Concomitant]
     Active Substance: CYANOCOBALAMIN
  18. CALCITRIOL [Concomitant]
     Active Substance: CALCITRIOL
  19. DOXAZOSIN [Concomitant]
     Active Substance: DOXAZOSIN MESYLATE
  20. LOSARTAN [Concomitant]
     Active Substance: LOSARTAN
  21. MINOXIDIL [Concomitant]
     Active Substance: MINOXIDIL
  22. PANTOPRAZOLE [Concomitant]
     Active Substance: PANTOPRAZOLE
  23. SODIUM BICARBONATE [Concomitant]
     Active Substance: SODIUM BICARBONATE
  24. JARDIANCE [Concomitant]
     Active Substance: EMPAGLIFLOZIN
  25. ZYRTEC [Concomitant]
     Active Substance: CETIRIZINE HYDROCHLORIDE
  26. COLACE [Concomitant]
     Active Substance: DOCUSATE SODIUM
  27. CALCITRIOL [Concomitant]
     Active Substance: CALCITRIOL

REACTIONS (12)
  - Blood pressure systolic increased [Unknown]
  - Glomerular filtration rate decreased [None]
  - Small intestinal obstruction [Recovered/Resolved]
  - Haemoperitoneum [Unknown]
  - Pneumoperitoneum [Unknown]
  - Postoperative ileus [Unknown]
  - Pleural effusion [Unknown]
  - Pneumonia aspiration [Unknown]
  - Blood creatinine increased [None]
  - Contraindicated product administered [Unknown]
  - Abdominal distension [Unknown]
  - Nephrolithiasis [Unknown]

NARRATIVE: CASE EVENT DATE: 20241107
